APPROVED DRUG PRODUCT: ALCLOMETASONE DIPROPIONATE
Active Ingredient: ALCLOMETASONE DIPROPIONATE
Strength: 0.05%
Dosage Form/Route: CREAM;TOPICAL
Application: A076587 | Product #001 | TE Code: AB
Applicant: SUN PHARMA CANADA INC
Approved: Sep 15, 2005 | RLD: No | RS: No | Type: RX